FAERS Safety Report 8462595-0 (Version None)
Quarter: 2012Q2

REPORT INFORMATION
  Report Type: 
  Country: None (occurrence: None)
  Receive Date: 20120625
  Receipt Date: 20120424
  Transmission Date: 20120825
  Serious: No
  Sender: FDA-Public Use
  Company Number: US-BAUSCH-2012BL002854

PATIENT
  Age: 41 Year
  Sex: Female

DRUGS (6)
  1. BESIVANCE [Suspect]
     Indication: PROPHYLAXIS
     Route: 047
     Dates: start: 20120316, end: 20120327
  2. REFRESH [Concomitant]
  3. BESIVANCE [Suspect]
     Indication: OFF LABEL USE
     Route: 047
     Dates: start: 20120316, end: 20120327
  4. ASCORBIC ACID [Concomitant]
  5. GENTEAL GEL [Concomitant]
  6. DEXAMETHASONE SODIUM PHOSPHATE OPHTHALMIC SOLUTION,0.1% [Concomitant]

REACTIONS (3)
  - CORNEAL EPITHELIUM DEFECT [None]
  - CORNEAL OPACITY [None]
  - IMPAIRED HEALING [None]
